FAERS Safety Report 9756795 (Version 1)
Quarter: 2013Q4

REPORT INFORMATION
  Report Type: Other
  Country: US (occurrence: US)
  Receive Date: 20131213
  Receipt Date: 20131213
  Transmission Date: 20140711
  Serious: Yes (Death)
  Sender: FDA-Public Use
  Company Number: US-BRISTOL-MYERS SQUIBB COMPANY-19918713

PATIENT
  Age: 54 Year
  Sex: Male

DRUGS (1)
  1. HYDROXYUREA [Suspect]

REACTIONS (1)
  - Plasma cell myeloma [Fatal]
